FAERS Safety Report 16071722 (Version 1)
Quarter: 2019Q1

REPORT INFORMATION
  Report Type: Spontaneous
  Country: US (occurrence: US)
  Receive Date: 20190314
  Receipt Date: 20190314
  Transmission Date: 20190418
  Serious: No
  Sender: FDA-Public Use
  Company Number: US-BAYER-2019-051704

PATIENT
  Age: 30 Year
  Sex: Female

DRUGS (1)
  1. SKYLA [Suspect]
     Active Substance: LEVONORGESTREL
     Indication: CONTRACEPTION
     Dosage: 14 MCG/24HR, CONT
     Route: 015
     Dates: start: 201710

REACTIONS (7)
  - Weight increased [None]
  - Hormone level abnormal [None]
  - Patient dissatisfaction with treatment [None]
  - Vaginal discharge [None]
  - Abdominal distension [None]
  - Abdominal pain lower [None]
  - Pain [None]

NARRATIVE: CASE EVENT DATE: 201711
